FAERS Safety Report 4567952-0 (Version None)
Quarter: 2005Q1

REPORT INFORMATION
  Report Type: 
  Country: None (occurrence: None)
  Receive Date: 20050202
  Receipt Date: 20041201
  Transmission Date: 20050727
  Serious: No
  Sender: FDA-Public Use
  Company Number: US-GLAXOSMITHKLINE-A0535714A

PATIENT
  Age: 66 Year
  Sex: Female
  Weight: 46.8 kg

DRUGS (1)
  1. NAVELBINE [Suspect]
     Indication: DRUG USE FOR UNKNOWN INDICATION
     Route: 065

REACTIONS (2)
  - MIGRAINE [None]
  - PHARMACEUTICAL PRODUCT COMPLAINT [None]
